FAERS Safety Report 13395179 (Version 1)
Quarter: 2017Q2

REPORT INFORMATION
  Report Type: Spontaneous
  Country: US (occurrence: US)
  Receive Date: 20170403
  Receipt Date: 20170403
  Transmission Date: 20170830
  Serious: No
  Sender: FDA-Public Use
  Company Number: US-STRIDES ARCOLAB LIMITED-2017SP001384

PATIENT

DRUGS (2)
  1. PHOSPHATE                          /01053101/ [Concomitant]
     Indication: HYPOPHOSPHATAEMIA
     Dosage: UNK
  2. CALCITRIOL. [Suspect]
     Active Substance: CALCITRIOL
     Indication: HYPOPHOSPHATAEMIA
     Dosage: UNK

REACTIONS (1)
  - Off label use [Unknown]
